FAERS Safety Report 15298890 (Version 2)
Quarter: 2018Q3

REPORT INFORMATION
  Report Type: Report from Study
  Country: BR (occurrence: BR)
  Receive Date: 20180821
  Receipt Date: 20180910
  Transmission Date: 20181010
  Serious: Yes (Hospitalization)
  Sender: FDA-Public Use
  Company Number: BR-UCBSA-2018014049

PATIENT
  Age: 2 Year
  Sex: Female
  Weight: 16 kg

DRUGS (5)
  1. LEVETIRACETAM. [Suspect]
     Active Substance: LEVETIRACETAM
     Indication: EPILEPSY
     Dosage: 4.5 ML, 2X/DAY (BID)
     Route: 048
     Dates: start: 201707
  2. VIMPAT [Suspect]
     Active Substance: LACOSAMIDE
     Dosage: 3ML IN MORNING AND 4ML IN EVENING, 2X/DAY (BID)
     Route: 048
     Dates: start: 2018, end: 2018
  3. FRISIUM [Concomitant]
     Active Substance: CLOBAZAM
     Indication: PRODUCT USED FOR UNKNOWN INDICATION
  4. DEPAKOTE [Concomitant]
     Active Substance: DIVALPROEX SODIUM
     Indication: PRODUCT USED FOR UNKNOWN INDICATION
  5. VIMPAT [Suspect]
     Active Substance: LACOSAMIDE
     Indication: EPILEPSY
     Dosage: 1.5 ML, 2X/DAY (BID)
     Route: 048
     Dates: start: 20180411, end: 2018

REACTIONS (7)
  - Ear infection [Recovered/Resolved]
  - Drug ineffective [Unknown]
  - Balance disorder [Recovering/Resolving]
  - Epilepsy [Not Recovered/Not Resolved]
  - Pharyngitis [Recovered/Resolved]
  - Intentional product misuse [Unknown]
  - Irritability [Recovering/Resolving]

NARRATIVE: CASE EVENT DATE: 201711
